FAERS Safety Report 5650254-9 (Version None)
Quarter: 2008Q1

REPORT INFORMATION
  Report Type: 
  Country: None (occurrence: None)
  Receive Date: 20080303
  Receipt Date: 20080219
  Transmission Date: 20080703
  Serious: Yes (Hospitalization)
  Sender: FDA-Public Use
  Company Number: 2008BI000978

PATIENT
  Age: 19 Year
  Sex: Female
  Weight: 78 kg

DRUGS (1)
  1. AVONEX [Suspect]
     Indication: MULTIPLE SCLEROSIS
     Dosage: 30 UG;QW;IM
     Route: 030
     Dates: start: 20070501

REACTIONS (8)
  - GASTRITIS [None]
  - HAEMATOMA [None]
  - HEPATIC ENZYME INCREASED [None]
  - IMPAIRED GASTRIC EMPTYING [None]
  - NAUSEA [None]
  - PSYCHOSOMATIC DISEASE [None]
  - SINUSITIS [None]
  - SPLENOMEGALY [None]
